FAERS Safety Report 17030178 (Version 4)
Quarter: 2020Q1

REPORT INFORMATION
  Report Type: Spontaneous
  Country: CA (occurrence: CA)
  Receive Date: 20191114
  Receipt Date: 20200303
  Transmission Date: 20200409
  Serious: Yes (Hospitalization, Other)
  Sender: FDA-Public Use
  Company Number: CA-TAKEDA-2019TUS063886

PATIENT
  Sex: Female

DRUGS (14)
  1. ELIQUIS [Suspect]
     Active Substance: APIXABAN
     Indication: COLITIS ULCERATIVE
     Dosage: 2 DOSAGE FORM, QD
     Route: 065
  2. ELIQUIS [Suspect]
     Active Substance: APIXABAN
     Indication: COLITIS
  3. STELARA [Suspect]
     Active Substance: USTEKINUMAB
     Indication: COLITIS
  4. INFLIXIMAB [Suspect]
     Active Substance: INFLIXIMAB
     Indication: COLITIS
  5. CICLOSPORIN [Suspect]
     Active Substance: CYCLOSPORINE
     Indication: COLITIS ULCERATIVE
     Dosage: UNK
     Route: 065
  6. CICLOSPORIN [Suspect]
     Active Substance: CYCLOSPORINE
     Indication: COLITIS
  7. FENTANYL. [Concomitant]
     Active Substance: FENTANYL
     Dosage: 50 MICROGRAM
     Route: 042
     Dates: start: 20190315, end: 20190315
  8. ENTYVIO [Suspect]
     Active Substance: VEDOLIZUMAB
     Indication: COLITIS
  9. PREDNISONE. [Suspect]
     Active Substance: PREDNISONE
     Indication: COLITIS
     Dosage: 30 MILLIGRAM, QD
     Route: 065
  10. INFLIXIMAB [Suspect]
     Active Substance: INFLIXIMAB
     Indication: COLITIS ULCERATIVE
     Dosage: UNK
     Route: 065
  11. PREDNISONE. [Suspect]
     Active Substance: PREDNISONE
     Indication: COLITIS ULCERATIVE
     Dosage: 40 MILLIGRAM, QD
     Route: 065
  12. ENTYVIO [Suspect]
     Active Substance: VEDOLIZUMAB
     Indication: COLITIS ULCERATIVE
     Dosage: UNK
     Route: 042
  13. STELARA [Suspect]
     Active Substance: USTEKINUMAB
     Indication: COLITIS ULCERATIVE
     Dosage: UNK
     Route: 058
     Dates: end: 20190302
  14. FENTANYL. [Concomitant]
     Active Substance: FENTANYL
     Indication: PRODUCT USED FOR UNKNOWN INDICATION
     Dosage: 3 MILLIGRAM
     Route: 042

REACTIONS (23)
  - Lymphocyte count decreased [Unknown]
  - Drug ineffective [Unknown]
  - Haematochezia [Unknown]
  - Mean cell haemoglobin concentration decreased [Unknown]
  - Platelet count increased [Unknown]
  - Blood cholesterol increased [Unknown]
  - Red blood cell count decreased [Unknown]
  - Hypersensitivity [Unknown]
  - Condition aggravated [Unknown]
  - Mean platelet volume decreased [Unknown]
  - Neutrophil count increased [Unknown]
  - Abdominal lymphadenopathy [Unknown]
  - Off label use [Unknown]
  - Red cell distribution width increased [Unknown]
  - Pulmonary embolism [Unknown]
  - Colitis ulcerative [Unknown]
  - Haemoglobin decreased [Unknown]
  - Monocyte count decreased [Unknown]
  - Colitis [Unknown]
  - C-reactive protein increased [Unknown]
  - Gamma-glutamyltransferase increased [Unknown]
  - Haematocrit decreased [Unknown]
  - Product use in unapproved indication [Unknown]

NARRATIVE: CASE EVENT DATE: 20190313
